FAERS Safety Report 8483846-2 (Version None)
Quarter: 2012Q3

REPORT INFORMATION
  Report Type: 
  Country: None (occurrence: None)
  Receive Date: 20120703
  Receipt Date: 20120625
  Transmission Date: 20120928
  Serious: No
  Sender: FDA-Public Use
  Company Number: US-BIOGENIDEC-2012BI022681

PATIENT
  Sex: Female

DRUGS (3)
  1. AVONEX [Suspect]
     Indication: MULTIPLE SCLEROSIS
     Route: 030
     Dates: start: 20000101
  2. AVONEX [Suspect]
     Route: 030
  3. IBUPROFEN [Concomitant]
     Indication: PREMEDICATION

REACTIONS (4)
  - FATIGUE [None]
  - EPSTEIN-BARR VIRUS INFECTION [None]
  - INFLUENZA LIKE ILLNESS [None]
  - FIBROMYALGIA [None]
